FAERS Safety Report 18458155 (Version 1)
Quarter: 2020Q4

REPORT INFORMATION
  Report Type: Spontaneous
  Country: CN (occurrence: CN)
  Receive Date: 20201103
  Receipt Date: 20201103
  Transmission Date: 20210114
  Serious: Yes (Other)
  Sender: FDA-Public Use
  Company Number: CN-ELI_LILLY_AND_COMPANY-CN202010010000

PATIENT
  Sex: Male

DRUGS (2)
  1. CIALIS [Suspect]
     Active Substance: TADALAFIL
     Indication: ERECTILE DYSFUNCTION
     Dosage: 5 MG, DAILY
     Route: 048
     Dates: start: 201903
  2. CIALIS [Suspect]
     Active Substance: TADALAFIL
     Dosage: 5 MG, DAILY
     Route: 048
     Dates: start: 20201019

REACTIONS (6)
  - Dizziness [Unknown]
  - Discomfort [Unknown]
  - Drug ineffective [Unknown]
  - Brain oedema [Unknown]
  - Back pain [Recovering/Resolving]
  - Myalgia [Recovering/Resolving]

NARRATIVE: CASE EVENT DATE: 202010
